FAERS Safety Report 7860150-4 (Version None)
Quarter: 2011Q4

REPORT INFORMATION
  Report Type: 
  Country: None (occurrence: None)
  Receive Date: 20111027
  Receipt Date: 20111024
  Transmission Date: 20120403
  Serious: No
  Sender: FDA-Public Use
  Company Number: US-PFIZER INC-2011257693

PATIENT

DRUGS (1)
  1. EFFEXOR XR [Suspect]
     Dosage: 150MG, UNK
     Dates: start: 20070101

REACTIONS (1)
  - RASH PRURITIC [None]
